FAERS Safety Report 8198333-9 (Version None)
Quarter: 2012Q1

REPORT INFORMATION
  Report Type: 
  Country: None (occurrence: None)
  Receive Date: 20120309
  Receipt Date: 20120227
  Transmission Date: 20120608
  Serious: Yes (Other)
  Sender: FDA-Public Use
  Company Number: PHHY2011US18979

PATIENT
  Sex: Female

DRUGS (5)
  1. ZANTAC [Concomitant]
     Dosage: UNK UKN, UNK
  2. PRAVASTATIN [Concomitant]
  3. PRILOSEC [Concomitant]
     Dosage: UNK UKN, UNK
  4. METOPROLOL SUCCINATE [Concomitant]
     Dosage: UNK UKN, UNK
  5. RECLAST [Suspect]
     Dosage: 5 MG/100ML
     Route: 042
     Dates: start: 20110201

REACTIONS (10)
  - PERIARTHRITIS [None]
  - PRURITUS [None]
  - PAIN [None]
  - MUSCULOSKELETAL PAIN [None]
  - BLOOD CHOLESTEROL INCREASED [None]
  - NAUSEA [None]
  - MASS [None]
  - RASH MACULAR [None]
  - PAIN IN EXTREMITY [None]
  - MYALGIA [None]
